FAERS Safety Report 7253909-8 (Version None)
Quarter: 2011Q1

REPORT INFORMATION
  Report Type: 
  Country: None (occurrence: None)
  Receive Date: 20110129
  Receipt Date: 20100427
  Transmission Date: 20110831
  Serious: No
  Sender: FDA-Public Use
  Company Number: US-ABBOTT-10P-163-0641059-00

PATIENT
  Sex: Male
  Weight: 76.272 kg

DRUGS (2)
  1. HUMIRA [Suspect]
     Indication: CROHN'S DISEASE
  2. HUMIRA [Suspect]
     Dates: start: 20091101

REACTIONS (2)
  - HAEMORRHAGE [None]
  - DRUG EFFECT DECREASED [None]
